FAERS Safety Report 9590923 (Version 2)
Quarter: 2013Q4

REPORT INFORMATION
  Report Type: Spontaneous
  Country: US (occurrence: US)
  Receive Date: 20131003
  Receipt Date: 20131003
  Transmission Date: 20140711
  Serious: No
  Sender: FDA-Public Use
  Company Number: US-AMGEN-USASP2012071070

PATIENT
  Age: 46 Year
  Sex: Male
  Weight: 93.42 kg

DRUGS (6)
  1. ENBREL [Suspect]
     Indication: RHEUMATOID ARTHRITIS
     Dosage: 50 MG, QWK
     Route: 058
     Dates: start: 201204, end: 201209
  2. FOLIC ACID [Concomitant]
     Dosage: 1 MG, QD
     Route: 048
  3. METHOTREXATE [Concomitant]
     Indication: RHEUMATOID ARTHRITIS
     Dosage: 17.5 MG, QWK
     Route: 048
     Dates: start: 201109
  4. LISINOPRIL [Concomitant]
     Dosage: UNK UNK, QD
     Route: 048
  5. PREDNISONE [Concomitant]
     Indication: RHEUMATOID ARTHRITIS
     Dosage: 5-10 MG
     Route: 048
  6. SIMVASTATIN [Concomitant]
     Indication: BLOOD CHOLESTEROL
     Dosage: 20 MG, UNK
     Route: 048

REACTIONS (4)
  - Pain in extremity [Recovered/Resolved]
  - Local swelling [Recovered/Resolved]
  - Rheumatoid arthritis [Unknown]
  - Drug ineffective [Recovered/Resolved]
